FAERS Safety Report 23630329 (Version 1)
Quarter: 2024Q1

REPORT INFORMATION
  Report Type: Spontaneous
  Country: ZA (occurrence: ZA)
  Receive Date: 20240314
  Receipt Date: 20240314
  Transmission Date: 20240409
  Serious: Yes (Hospitalization)
  Sender: FDA-Public Use
  Company Number: ZA-ABBOTT-2024A-1378839

PATIENT
  Age: 65 Year
  Sex: Male

DRUGS (10)
  1. FENOFIBRATE [Suspect]
     Active Substance: FENOFIBRATE
     Indication: Blood cholesterol abnormal
     Dosage: AT NIGHT
     Route: 048
  2. ALLOPURINOL [Concomitant]
     Active Substance: ALLOPURINOL
     Indication: Gout
     Route: 048
  3. Uromax [Concomitant]
     Indication: Prostatomegaly
     Route: 048
  4. Pendine [Concomitant]
     Indication: Hypertension
     Dosage: ONE TABLET AT NIGHT
     Route: 048
  5. METFORMIN HYDROCHLORIDE [Concomitant]
     Active Substance: METFORMIN HYDROCHLORIDE
     Indication: Diabetes mellitus
     Dosage: BIGSENS XR (METFORMIN HYDROCHLORIDE) 500 MG TAKE THREE TABLETS AT NIGHT
     Route: 048
  6. EUTHYROX [Concomitant]
     Active Substance: LEVOTHYROXINE SODIUM
     Indication: Thyroid disorder
     Route: 048
  7. ROSUVASTATIN [Concomitant]
     Active Substance: ROSUVASTATIN
     Indication: Blood cholesterol abnormal
     Dosage: ONE TABLET AT NIGHT
     Route: 048
  8. PANTOPRAZOLE SODIUM [Concomitant]
     Active Substance: PANTOPRAZOLE SODIUM
     Indication: Ulcer
     Dosage: ONE TABLET IN THE MORNING
     Route: 048
  9. HYDROCHLOROTHIAZIDE\LOSARTAN POTASSIUM [Concomitant]
     Active Substance: HYDROCHLOROTHIAZIDE\LOSARTAN POTASSIUM
     Indication: Hypertension
     Dosage: 100/12.5 MG
     Route: 048
  10. AMIODARONE [Concomitant]
     Active Substance: AMIODARONE
     Indication: Cardiac disorder
     Route: 048

REACTIONS (3)
  - Arthropod bite [Unknown]
  - Cholelithiasis [Unknown]
  - Tick-borne fever [Unknown]
